FAERS Safety Report 11080864 (Version 1)
Quarter: 2015Q2

REPORT INFORMATION
  Report Type: Report from Study
  Country: FR (occurrence: FR)
  Receive Date: 20150501
  Receipt Date: 20150501
  Transmission Date: 20150821
  Serious: Yes (Hospitalization, Other)
  Sender: FDA-Public Use
  Company Number: FR-ROCHE-1161428

PATIENT
  Age: 23 Year
  Sex: Female

DRUGS (1)
  1. RITUXIMAB [Suspect]
     Active Substance: RITUXIMAB
     Indication: RHEUMATOID ARTHRITIS
     Dosage: DAY 1
     Route: 042
     Dates: start: 20070303, end: 20070303

REACTIONS (11)
  - Lung transplant [Recovered/Resolved]
  - Respiratory tract congestion [Not Recovered/Not Resolved]
  - Rash [Recovered/Resolved]
  - Osteoporosis [Not Recovered/Not Resolved]
  - Embolism [Recovered/Resolved]
  - Rhinorrhoea [Recovered/Resolved]
  - Sepsis [Recovered/Resolved]
  - Bronchopneumonia [Recovered/Resolved]
  - Infusion related reaction [Recovered/Resolved]
  - Alopecia [Not Recovered/Not Resolved]
  - Bronchopneumonia [Recovered/Resolved]

NARRATIVE: CASE EVENT DATE: 20070503
